FAERS Safety Report 6188765-2 (Version None)
Quarter: 2009Q2

REPORT INFORMATION
  Report Type: 
  Country: None (occurrence: None)
  Receive Date: 20090513
  Receipt Date: 20090511
  Transmission Date: 20091009
  Serious: Yes (Hospitalization)
  Sender: FDA-Public Use
  Company Number: BE-BAYER-200920445GPV

PATIENT

DRUGS (1)
  1. BETAFERON [Suspect]
     Indication: MULTIPLE SCLEROSIS
     Dates: start: 20020517, end: 20090108

REACTIONS (3)
  - EPILEPSY [None]
  - HYPERTHERMIA [None]
  - LIVER FUNCTION TEST ABNORMAL [None]
